FAERS Safety Report 8512701-4 (Version None)
Quarter: 2012Q3

REPORT INFORMATION
  Report Type: 
  Country: None (occurrence: None)
  Receive Date: 20120716
  Receipt Date: 20120704
  Transmission Date: 20120928
  Serious: Yes (Hospitalization)
  Sender: FDA-Public Use
  Company Number: FR-PFIZER INC-2012160199

PATIENT
  Age: 59 Year
  Sex: Female

DRUGS (1)
  1. SUNITINIB MALATE [Suspect]
     Indication: BILE DUCT CANCER
     Dosage: 37.5 MG, UNK
     Dates: start: 20120323, end: 20120615

REACTIONS (1)
  - CORONARY ARTERY DISEASE [None]
